FAERS Safety Report 24017347 (Version 2)
Quarter: 2024Q3

REPORT INFORMATION
  Report Type: Report from Study
  Country: US (occurrence: US)
  Receive Date: 20240627
  Receipt Date: 20240703
  Transmission Date: 20241017
  Serious: Yes (Hospitalization, Other)
  Sender: UCB
  Company Number: US-UCBSA-2024032343

PATIENT
  Sex: Male

DRUGS (3)
  1. BRIVARACETAM [Suspect]
     Active Substance: BRIVARACETAM
     Indication: Product used for unknown indication
     Dosage: 75 MILLIGRAM
  2. BRIVARACETAM [Suspect]
     Active Substance: BRIVARACETAM
     Dosage: 150 MILLIGRAM, 2X/DAY (BID) (50MG-3 TAB BID)
  3. LACOSAMIDE [Concomitant]
     Active Substance: LACOSAMIDE
     Indication: Product used for unknown indication

REACTIONS (7)
  - Loss of consciousness [Unknown]
  - Traumatic intracranial haemorrhage [Unknown]
  - Subdural haematoma [Unknown]
  - Head injury [Unknown]
  - Fall [Unknown]
  - Off label use [Unknown]
  - Overdose [Unknown]
